FAERS Safety Report 11072774 (Version 1)
Quarter: 2015Q2

REPORT INFORMATION
  Report Type: Spontaneous
  Country: US (occurrence: US)
  Receive Date: 20150428
  Receipt Date: 20150428
  Transmission Date: 20150821
  Serious: No
  Sender: FDA-Public Use
  Company Number: US-DSJP-DSU-2015-109646

PATIENT
  Sex: Female

DRUGS (2)
  1. SAVAYSA [Suspect]
     Active Substance: EDOXABAN TOSYLATE
     Indication: ATRIAL FIBRILLATION
     Dosage: 60 MG, UNK
  2. SAVAYSA [Suspect]
     Active Substance: EDOXABAN TOSYLATE
     Dosage: 30 MG, UNK

REACTIONS (2)
  - Haematochezia [Unknown]
  - Surgery [Unknown]
